FAERS Safety Report 9300494 (Version 1)
Quarter: 2012Q4

REPORT INFORMATION
  Report Type: Spontaneous
  Country: US (occurrence: None)
  Receive Date: 20121116
  Receipt Date: 20121116
  Transmission Date: 20130627
  Serious: Yes (Hospitalization, Other)
  Sender: FDA-Public Use
  Company Number: JPI-P-025927

PATIENT
  Age: 63 Year
  Sex: Male
  Weight: 114.04 kg

DRUGS (6)
  1. XYREM (500 MILLIGRAM/MILLILITERS, SOLUTION)(SODIUM OXYBATE) [Suspect]
     Indication: CATAPLEXY
     Dosage: (2,25 gm, 2 in 1 D)
     Route: 048
     Dates: start: 20100423
  2. XYREM (500 MILLIGRAM/MILLILITERS, SOLUTION)(SODIUM OXYBATE) [Suspect]
     Indication: CATAPLEXY
     Dosage: (3.75 gm, 2 in 1 D)
     Route: 048
     Dates: start: 201008
  3. XYREM (500 MILLIGRAM/MILLILITERS, SOLUTION)(SODIUM OXYBATE) [Suspect]
     Indication: CATAPLEXY
     Dosage: (4.5 gm, 2 in 1 D)
     Route: 048
     Dates: start: 20100903
  4. MODAFINIL [Concomitant]
  5. ARMODAFINIL [Concomitant]
  6. SPIRONOLACTONE [Concomitant]

REACTIONS (10)
  - Thyroid neoplasm [None]
  - Oedema [None]
  - Chest pain [None]
  - Bradycardia [None]
  - Hypertension [None]
  - Fatigue [None]
  - Asthenia [None]
  - Fluid overload [None]
  - Transurethral prostatectomy [None]
  - Post procedural complication [None]
